FAERS Safety Report 6597162-7 (Version None)
Quarter: 2010Q1

REPORT INFORMATION
  Report Type: 
  Country: None (occurrence: None)
  Receive Date: 20100223
  Receipt Date: 20100203
  Transmission Date: 20100710
  Serious: No
  Sender: FDA-Public Use
  Company Number: US-BAYER-201013299NA

PATIENT
  Age: 41 Year
  Sex: Female
  Weight: 75 kg

DRUGS (6)
  1. MAGNEVIST [Suspect]
     Indication: NUCLEAR MAGNETIC RESONANCE IMAGING
     Dosage: TOTAL DAILY DOSE: 15 ML
     Route: 042
     Dates: start: 20100201, end: 20100201
  2. MEDROL [Concomitant]
     Indication: BACK PAIN
     Dates: start: 20100128
  3. ZANAFLEX [Concomitant]
  4. OXYCONTIN [Concomitant]
  5. TYLOX [Concomitant]
  6. ALEVE (CAPLET) [Concomitant]

REACTIONS (4)
  - PRURITUS [None]
  - RASH [None]
  - URTICARIA [None]
  - WHEEZING [None]
